FAERS Safety Report 4351988-9 (Version None)
Quarter: 2004Q2

REPORT INFORMATION
  Report Type: 
  Country: None (occurrence: None)
  Receive Date: 20040429
  Receipt Date: 20040227
  Transmission Date: 20050107
  Serious: No
  Sender: FDA-Public Use
  Company Number: 2004-113206-NL

PATIENT
  Age: 33 Year
  Sex: Female

DRUGS (1)
  1. NUVARING [Suspect]
     Indication: CONTRACEPTION
     Dosage: 1 DF 4WEEKLY, VAGINAL
     Route: 067
     Dates: start: 20040120, end: 20040210

REACTIONS (2)
  - ABDOMINAL PAIN [None]
  - UNINTENDED PREGNANCY [None]
